FAERS Safety Report 5629228-X (Version None)
Quarter: 2008Q1

REPORT INFORMATION
  Report Type: 
  Country: None (occurrence: None)
  Receive Date: 20080217
  Receipt Date: 20070719
  Transmission Date: 20080703
  Serious: No
  Sender: FDA-Public Use
  Company Number: US-BAYER-US-2007-026718

PATIENT
  Sex: Female

DRUGS (4)
  1. FINACEA [Suspect]
     Indication: ROSACEA
     Route: 061
  2. FINACEA [Suspect]
  3. FINACEA [Suspect]
  4. FINACEA [Suspect]

REACTIONS (1)
  - ORAL HERPES [None]
